FAERS Safety Report 23750020 (Version 1)
Quarter: 2024Q2

REPORT INFORMATION
  Report Type: Spontaneous
  Country: CN (occurrence: CN)
  Receive Date: 20240417
  Receipt Date: 20240417
  Transmission Date: 20240717
  Serious: Yes (Hospitalization, Other)
  Sender: FDA-Public Use
  Company Number: CN-NOVOPROD-1202192

PATIENT
  Age: 73 Year
  Sex: Male
  Weight: 70 kg

DRUGS (1)
  1. INSULIN ASPART [Suspect]
     Active Substance: INSULIN ASPART
     Indication: Type 2 diabetes mellitus
     Dosage: UNK
     Dates: start: 2017

REACTIONS (2)
  - Hepatic encephalopathy [Unknown]
  - Liver disorder [Unknown]

NARRATIVE: CASE EVENT DATE: 20210301
